FAERS Safety Report 24541103 (Version 1)
Quarter: 2024Q4

REPORT INFORMATION
  Report Type: Spontaneous
  Country: IT (occurrence: IT)
  Receive Date: 20241023
  Receipt Date: 20241023
  Transmission Date: 20250115
  Serious: Yes (Hospitalization, Disabling, Other)
  Sender: MYLAN
  Company Number: None

PATIENT
  Age: 54 Year
  Sex: Male
  Weight: 54 kg

DRUGS (8)
  1. METHOTREXATE [Suspect]
     Active Substance: METHOTREXATE
     Indication: Burkitt^s lymphoma stage IV
     Dosage: METHOTREXATE 300,000 MG/MQ (EFFECTIVE DOSE 480 MG TOTAL) IN RAPID ADMINISTRATION ON DAY 08/15/2024
     Route: 042
     Dates: start: 20240814, end: 20240815
  2. METHOTREXATE [Suspect]
     Active Substance: METHOTREXATE
     Indication: Burkitt^s lymphoma stage IV
     Dosage: METHOTREXATE 2700,000 MG/MQ (EFFECTIVE DOSE 4320 MG TOTAL) IN A 24-HOUR ADMINISTRATION ON DAY 08/15/
     Route: 042
     Dates: start: 20240815
  3. CYCLOPHOSPHAMIDE [Suspect]
     Active Substance: CYCLOPHOSPHAMIDE
     Indication: Product used for unknown indication
     Dosage: CYCLOPHOSPHAMIDE 800,000 MG/M2 (EFFECTIVE DOSE OF 1280 MG TOTAL) ON 06/08/2024
     Route: 042
     Dates: start: 20240806, end: 20240806
  4. CYCLOPHOSPHAMIDE [Suspect]
     Active Substance: CYCLOPHOSPHAMIDE
     Indication: Product used for unknown indication
     Dosage: 200,000 MG/M2 (EFFECTIVE DOSE 320 MG TOTAL) ON 07-08-09-10/08/2024,
     Route: 042
     Dates: start: 20240807, end: 20240810
  5. DOXORUBICIN HYDROCHLORIDE [Suspect]
     Active Substance: DOXORUBICIN HYDROCHLORIDE
     Indication: Product used for unknown indication
     Dosage: DOXORUBICIN 40,000 MG/M2 (EFFECTIVE DOSE 64 MG TOTAL) ON 06/08/2024
     Route: 042
     Dates: start: 20240806, end: 20240806
  6. VINCRISTINE [Suspect]
     Active Substance: VINCRISTINE
     Indication: Product used for unknown indication
     Dosage: VINCRISTINE 1,500 MG/M2 (EFFECTIVE DOSE 2 MG TOTAL) ON 06/08 AND 13/08/2024
     Route: 042
     Dates: start: 20240806, end: 20240813
  7. CYTARABINE [Suspect]
     Active Substance: CYTARABINE
     Indication: Product used for unknown indication
     Dosage: ON 17/08 INTRATHECAL ADMINISTRATION OF 50 MG OF CYTARABINE
     Route: 037
     Dates: start: 20240817, end: 20240817
  8. FAMOTIDINE [Concomitant]
     Active Substance: FAMOTIDINE
     Dosage: 40 MILLIGRAM, QD
     Route: 048
     Dates: start: 202408

REACTIONS (3)
  - Acute kidney injury [Recovered/Resolved with Sequelae]
  - Encephalopathy [Recovered/Resolved with Sequelae]
  - Mucosal inflammation [Recovered/Resolved]

NARRATIVE: CASE EVENT DATE: 20240815
